FAERS Safety Report 4764006-5 (Version None)
Quarter: 2005Q3

REPORT INFORMATION
  Report Type: 
  Country: None (occurrence: None)
  Receive Date: 20050906
  Receipt Date: 20050825
  Transmission Date: 20060218
  Serious: Yes (Hospitalization, Other)
  Sender: FDA-Public Use
  Company Number: 2005045644

PATIENT
  Age: 32 Year
  Sex: Female
  Weight: 63.5036 kg

DRUGS (6)
  1. DIDREX [Suspect]
     Indication: ATTENTION DEFICIT/HYPERACTIVITY DISORDER
     Dosage: 200 MG (50 MG, 1 IN 2 D), ORAL
     Route: 048
     Dates: start: 19700101
  2. DIDREX [Suspect]
     Indication: DEPRESSION
     Dosage: 200 MG (50 MG, 1 IN 2 D), ORAL
     Route: 048
     Dates: start: 19700101
  3. ALL OTHER THERAPEUTIC PRODUCTS (ALL OTHER THERAPEUTIC PRODUCTS) [Suspect]
     Indication: ILL-DEFINED DISORDER
     Dosage: INTRAMUSCULAR
     Route: 030
     Dates: start: 19950401
  4. LEVOXYL [Concomitant]
  5. ZOCOR [Concomitant]
  6. RESTORIL [Concomitant]

REACTIONS (14)
  - BLOOD CHOLESTEROL INCREASED [None]
  - CONSTIPATION [None]
  - DEPRESSION [None]
  - HEADACHE [None]
  - HYPOTHYROIDISM [None]
  - LOSS OF CONSCIOUSNESS [None]
  - NAUSEA [None]
  - NERVOUSNESS [None]
  - SINUS DISORDER [None]
  - THYROID DISORDER [None]
  - THYROID FUNCTION TEST NORMAL [None]
  - THYROXINE INCREASED [None]
  - UNEVALUABLE EVENT [None]
  - VISION BLURRED [None]
